FAERS Safety Report 7324586-2 (Version None)
Quarter: 2011Q1

REPORT INFORMATION
  Report Type: 
  Country: None (occurrence: None)
  Receive Date: 20110218
  Receipt Date: 20110214
  Transmission Date: 20110831
  Serious: Yes (Other)
  Sender: FDA-Public Use
  Company Number: A0910193A

PATIENT
  Age: 59 Year
  Sex: Female

DRUGS (1)
  1. UREA HYDROGEN PEROXIDE (FORMULATION UNKNOWN) (UREA HYDROGENPEROXIDE) [Suspect]
     Indication: CERUMEN IMPACTION

REACTIONS (3)
  - EAR DISCOMFORT [None]
  - DEAFNESS [None]
  - DRUG INEFFECTIVE [None]
